FAERS Safety Report 9779044 (Version 1)
Quarter: 2013Q4

REPORT INFORMATION
  Report Type: Spontaneous
  Country: US (occurrence: US)
  Receive Date: 20131223
  Receipt Date: 20131223
  Transmission Date: 20140711
  Serious: Yes (Death)
  Sender: FDA-Public Use
  Company Number: US-JNJFOC-20131213220

PATIENT
  Age: 69 Year
  Sex: Female

DRUGS (11)
  1. SIMPONI [Suspect]
     Indication: RHEUMATOID ARTHRITIS
     Route: 058
     Dates: start: 20131111
  2. COREG [Concomitant]
     Route: 065
  3. CITALOPRAM [Concomitant]
     Route: 065
  4. HYDROCORTISONE [Concomitant]
     Route: 065
  5. LEFLUNOMIDE [Concomitant]
     Route: 065
  6. LORAZEPAM [Concomitant]
     Route: 065
  7. OLANZAPINE [Concomitant]
     Route: 065
  8. AMLODIPINE [Concomitant]
     Route: 065
  9. PLAVIX [Concomitant]
     Route: 058
  10. THREONINE [Concomitant]
     Route: 065
  11. DOXAZOSIN [Concomitant]
     Route: 065

REACTIONS (11)
  - Pyomyositis [Fatal]
  - Renal failure acute [Fatal]
  - Circulatory collapse [Fatal]
  - Debridement [Unknown]
  - Deep vein thrombosis [Unknown]
  - Atrial fibrillation [Unknown]
  - Necrotising fasciitis [Unknown]
  - Septic shock [Unknown]
  - Candida infection [Unknown]
  - Abscess limb [Unknown]
  - Lower extremity mass [Unknown]
